FAERS Safety Report 16824382 (Version 2)
Quarter: 2019Q4

REPORT INFORMATION
  Report Type: Spontaneous
  Country: JP (occurrence: JP)
  Receive Date: 20190918
  Receipt Date: 20191008
  Transmission Date: 20200122
  Serious: Yes (Other)
  Sender: FDA-Public Use
  Company Number: JP-GUERBET-JP-20190147

PATIENT
  Age: 18 Year
  Sex: Male

DRUGS (4)
  1. LIPIODOL [Suspect]
     Active Substance: ETHIODIZED OIL
     Indication: THERAPEUTIC EMBOLISATION
     Dosage: NBCA-LP 33%
     Route: 013
  2. LIPIODOL [Suspect]
     Active Substance: ETHIODIZED OIL
     Route: 013
  3. HISTOACRYL [Concomitant]
     Active Substance: ENBUCRILATE
     Route: 013
  4. HISTOACRYL [Concomitant]
     Active Substance: ENBUCRILATE
     Indication: THERAPEUTIC EMBOLISATION
     Dosage: NBCA-LP : 33%
     Route: 013

REACTIONS (5)
  - Product use in unapproved indication [Unknown]
  - Hypoaesthesia [Unknown]
  - Embolism arterial [Unknown]
  - Vascular procedure complication [Unknown]
  - Erectile dysfunction [Unknown]
